FAERS Safety Report 6995561 (Version 22)
Quarter: 2015Q4

REPORT INFORMATION
  Report Type: Report from Study
  Country: CA (occurrence: CA)
  Receive Date: 20090515
  Receipt Date: 20151218
  Transmission Date: 20160305
  Serious: Yes (Other)
  Sender: FDA-Public Use
  Company Number: PHHY2009CA17803

PATIENT
  Age: 9 Year
  Sex: Male

DRUGS (2)
  1. SANDOSTATIN LAR DEPOT [Suspect]
     Active Substance: OCTREOTIDE ACETATE
     Indication: PITUITARY TUMOUR
     Dosage: 30 MG, QMO (ONCE A MONTH)
     Route: 030
     Dates: start: 20041217
  2. SANDOSTATIN LAR DEPOT [Suspect]
     Active Substance: OCTREOTIDE ACETATE
     Indication: ALBRIGHT^S DISEASE

REACTIONS (17)
  - Limb discomfort [Unknown]
  - Blood growth hormone increased [Unknown]
  - Varicella [Unknown]
  - Bone disorder [Unknown]
  - Tachyphrenia [Unknown]
  - Anxiety [Recovering/Resolving]
  - Blood pressure diastolic decreased [Unknown]
  - Dyspnoea [Unknown]
  - Bone pain [Unknown]
  - Pain [Unknown]
  - Gait disturbance [Unknown]
  - Headache [Unknown]
  - Facial pain [Unknown]
  - Malaise [Unknown]
  - Asthenia [Unknown]
  - Heart rate increased [Unknown]
  - Mobility decreased [Unknown]

NARRATIVE: CASE EVENT DATE: 200902
